FAERS Safety Report 5941564-6 (Version None)
Quarter: 2008Q4

REPORT INFORMATION
  Report Type: 
  Country: None (occurrence: None)
  Receive Date: 20081104
  Receipt Date: 20081104
  Transmission Date: 20090506
  Serious: Yes (Other)
  Sender: FDA-Public Use
  Company Number: None

PATIENT
  Age: 75 Year
  Sex: Male
  Weight: 126 kg

DRUGS (2)
  1. WARFARIN SODIUM [Suspect]
     Indication: ANTICOAGULANT THERAPY
     Dosage: 2.5 MG EVERY 48 HOURS PO
     Route: 048
  2. WARFARIN SODIUM [Suspect]
     Indication: ANTICOAGULANT THERAPY
     Dosage: 5 MG EVERY 48 HOURS PO
     Route: 048

REACTIONS (2)
  - COUGH [None]
  - MUSCLE HAEMORRHAGE [None]
